FAERS Safety Report 4449911-1 (Version None)
Quarter: 2004Q3

REPORT INFORMATION
  Report Type: 
  Country: None (occurrence: None)
  Receive Date: 20040802
  Receipt Date: 20040407
  Transmission Date: 20050211
  Serious: No
  Sender: FDA-Public Use
  Company Number: 2004-114905-NL

PATIENT
  Age: 19 Year
  Sex: Female
  Weight: 84.1 kg

DRUGS (5)
  1. NUVARING [Suspect]
     Indication: CONTRACEPTION
     Dosage: DF DAILY VAGINAL
     Route: 067
     Dates: start: 20040319
  2. NUVARING [Suspect]
     Indication: MENSTRUAL DISORDER
     Dosage: DF DAILY VAGINAL
     Route: 067
     Dates: start: 20040319
  3. AMOXICILLIN [Concomitant]
  4. HYDRO-CODEINE [Concomitant]
  5. UNSPECIFIED PRESCRIPTION DECONGESTANT [Concomitant]

REACTIONS (1)
  - METRORRHAGIA [None]
